FAERS Safety Report 21433867 (Version 1)
Quarter: 2022Q4

REPORT INFORMATION
  Report Type: Spontaneous
  Country: US (occurrence: US)
  Receive Date: 20221010
  Receipt Date: 20221010
  Transmission Date: 20230113
  Serious: Yes (Hospitalization)
  Sender: FDA-Public Use
  Company Number: US-NOVOPROD-963898

PATIENT
  Age: 44 Year
  Sex: Female

DRUGS (3)
  1. INSULIN DETEMIR [Suspect]
     Active Substance: INSULIN DETEMIR
     Indication: Postprandial hypoglycaemia
     Dosage: UNK
     Route: 058
     Dates: start: 20220924
  2. OZEMPIC [Suspect]
     Active Substance: SEMAGLUTIDE
     Indication: Postprandial hypoglycaemia
     Dosage: UNK
     Route: 058
     Dates: start: 20220924
  3. OZEMPIC [Suspect]
     Active Substance: SEMAGLUTIDE
     Indication: Postprandial hypoglycaemia
     Dosage: UNK
     Route: 058

REACTIONS (9)
  - Diarrhoea [Not Recovered/Not Resolved]
  - Vomiting [Not Recovered/Not Resolved]
  - Dehydration [Not Recovered/Not Resolved]
  - Swelling face [Not Recovered/Not Resolved]
  - Back pain [Not Recovered/Not Resolved]
  - Rash [Not Recovered/Not Resolved]
  - Product dispensing error [Unknown]
  - Incorrect dose administered [Unknown]
  - Product use in unapproved indication [Unknown]

NARRATIVE: CASE EVENT DATE: 20220924
